FAERS Safety Report 6520395-2 (Version None)
Quarter: 2009Q4

REPORT INFORMATION
  Report Type: 
  Country: None (occurrence: None)
  Receive Date: 20091229
  Receipt Date: 20090609
  Transmission Date: 20100525
  Serious: Yes (Hospitalization)
  Sender: FDA-Public Use
  Company Number: SE-JNJFOC-20090504221

PATIENT
  Sex: Female
  Weight: 61.8 kg

DRUGS (6)
  1. REMICADE [Suspect]
     Route: 042
  2. REMICADE [Suspect]
     Route: 042
  3. REMICADE [Suspect]
     Indication: CROHN'S DISEASE
     Route: 042
  4. METRONIDAZOLE [Concomitant]
     Indication: CROHN'S DISEASE
  5. PREDNISOLONE [Concomitant]
     Indication: CROHN'S DISEASE
  6. FERROUS IRON SUPPLEMENT [Concomitant]
     Indication: IRON DEFICIENCY

REACTIONS (6)
  - ABDOMINAL PAIN [None]
  - ABSCESS INTESTINAL [None]
  - CROHN'S DISEASE [None]
  - RESPIRATORY DISORDER [None]
  - SYNCOPE [None]
  - THERAPEUTIC RESPONSE DECREASED [None]
